FAERS Safety Report 13785018 (Version 2)
Quarter: 2017Q4

REPORT INFORMATION
  Report Type: Spontaneous
  Country: US (occurrence: US)
  Receive Date: 20170724
  Receipt Date: 20171024
  Transmission Date: 20180320
  Serious: No
  Sender: FDA-Public Use
  Company Number: US-IMPAX LABORATORIES, INC-2017-IPXL-01489

PATIENT
  Age: 71 Year
  Sex: Male
  Weight: 46 kg

DRUGS (2)
  1. RYTARY [Suspect]
     Active Substance: CARBIDOPA\LEVODOPA
     Indication: GAIT DISTURBANCE
     Dosage: 36.25/145 MG, 2 DF, 3 /DAY
     Route: 048
     Dates: start: 201705
  2. RYTARY [Suspect]
     Active Substance: CARBIDOPA\LEVODOPA
     Indication: MOVEMENT DISORDER

REACTIONS (4)
  - Musculoskeletal stiffness [Unknown]
  - Product use in unapproved indication [Unknown]
  - Anxiety [Unknown]
  - Muscle spasms [Unknown]

NARRATIVE: CASE EVENT DATE: 201705
